FAERS Safety Report 4588380-8 (Version None)
Quarter: 2005Q1

REPORT INFORMATION
  Report Type: 
  Country: None (occurrence: None)
  Receive Date: 20050216
  Receipt Date: 20041001
  Transmission Date: 20050727
  Serious: Yes (Hospitalization)
  Sender: FDA-Public Use
  Company Number: 2004SP000230

PATIENT
  Age: 86 Year
  Sex: Female

DRUGS (2)
  1. XOPENEX [Suspect]
     Dosage: 1.25 MG/3 ML; INHALATION
     Route: 055
  2. PROVENTIL [Concomitant]

REACTIONS (5)
  - ASTHMA [None]
  - BLOOD PRESSURE INCREASED [None]
  - BRONCHOSPASM [None]
  - CONVERSION DISORDER [None]
  - FLUSHING [None]
